FAERS Safety Report 14849825 (Version 2)
Quarter: 2018Q4

REPORT INFORMATION
  Report Type: Report from Study
  Country: US (occurrence: US)
  Receive Date: 20180504
  Receipt Date: 20181227
  Transmission Date: 20190204
  Serious: Yes (Other)
  Sender: FDA-Public Use
  Company Number: US-ACTELION-A-NJ2018-171572

PATIENT
  Age: 79 Year
  Sex: Male

DRUGS (1)
  1. OPSUMIT [Suspect]
     Active Substance: MACITENTAN
     Indication: PULMONARY ARTERIAL HYPERTENSION
     Dosage: 10 MG, QD
     Route: 048
     Dates: start: 20140610

REACTIONS (10)
  - Neoplasm malignant [Unknown]
  - Blood creatinine increased [Unknown]
  - Staphylococcus test positive [Unknown]
  - Blood cholesterol abnormal [Unknown]
  - Prothrombin time prolonged [Unknown]
  - International normalised ratio increased [Unknown]
  - Musculoskeletal pain [Unknown]
  - Mass [Unknown]
  - Muscular weakness [Not Recovered/Not Resolved]
  - Chondropathy [Unknown]
